FAERS Safety Report 5612640-2 (Version None)
Quarter: 2008Q1

REPORT INFORMATION
  Report Type: 
  Country: None (occurrence: None)
  Receive Date: 20080201
  Receipt Date: 20080201
  Transmission Date: 20080703
  Serious: Yes (Death, Life-Threatening, Hospitalization)
  Sender: FDA-Public Use
  Company Number: None

PATIENT
  Sex: Male
  Weight: 73 kg

DRUGS (22)
  1. CISPLATIN [Suspect]
     Indication: METASTATIC GASTRIC CANCER
     Dosage: 25MG/M2 IV BOLUS
     Route: 040
     Dates: start: 20071221
  2. CISPLATIN [Suspect]
     Indication: METASTATIC GASTRIC CANCER
     Dosage: 25MG/M2 IV BOLUS
     Route: 040
     Dates: start: 20071228
  3. IRINOTECAN HCL [Suspect]
     Indication: METASTATIC GASTRIC CANCER
     Dosage: 50MG/M2 IV BOLUS
     Route: 040
     Dates: start: 20071221
  4. IRINOTECAN HCL [Suspect]
     Indication: METASTATIC GASTRIC CANCER
     Dosage: 50MG/M2 IV BOLUS
     Route: 040
     Dates: start: 20071228
  5. BEVACIZUMAB Q 3 WEEKS [Suspect]
     Indication: METASTATIC GASTRIC CANCER
     Dosage: 10MG/M2 IV BOLUS
     Route: 040
     Dates: start: 20071221
  6. DOCETAXEL [Suspect]
     Indication: METASTATIC GASTRIC CANCER
     Dosage: 30MG/M2 IV BOLUS
     Route: 040
     Dates: start: 20071221
  7. DOCETAXEL [Suspect]
     Indication: METASTATIC GASTRIC CANCER
     Dosage: 30MG/M2 IV BOLUS
     Route: 040
     Dates: start: 20071228
  8. CALCIUM CARBONATE [Concomitant]
  9. DOCUSATE SODIUM [Concomitant]
  10. PROCHLORPERAZINE MALEATE [Concomitant]
  11. WARFARIN SODIUM [Concomitant]
  12. DEXAMETHASONE TAB [Concomitant]
  13. DIGOXIN [Concomitant]
  14. GUAIFENESIN AC [Concomitant]
  15. LEVOLOXACIN [Concomitant]
  16. LOPERAMIDE HCL [Concomitant]
  17. MEGESTROL ACETATE SUSPENSION [Concomitant]
  18. NYSTATIN [Concomitant]
  19. OXYCODONE HCL [Concomitant]
  20. OXYCODONE CONTROLLED RELEASE [Concomitant]
  21. SENNOSIDES [Concomitant]
  22. ONDANSETRON HCL [Concomitant]

REACTIONS (15)
  - ANOREXIA [None]
  - ATRIAL FIBRILLATION [None]
  - DEHYDRATION [None]
  - DIARRHOEA [None]
  - DRUG INTERACTION [None]
  - FATIGUE [None]
  - HYPOALBUMINAEMIA [None]
  - HYPOCALCAEMIA [None]
  - HYPONATRAEMIA [None]
  - HYPOTENSION [None]
  - INTERNATIONAL NORMALISED RATIO [None]
  - INTERNATIONAL NORMALISED RATIO ABNORMAL [None]
  - OESOPHAGEAL HAEMORRHAGE [None]
  - OESOPHAGITIS [None]
  - RESPIRATORY FAILURE [None]
